FAERS Safety Report 19013234 (Version 3)
Quarter: 2021Q1

REPORT INFORMATION
  Report Type: Spontaneous
  Country: US (occurrence: US)
  Receive Date: 20210315
  Receipt Date: 20210329
  Transmission Date: 20210420
  Serious: Yes (Other)
  Sender: FDA-Public Use
  Company Number: US-PFIZER INC-2021251913

PATIENT
  Age: 81 Year
  Sex: Female
  Weight: 62.14 kg

DRUGS (9)
  1. LEVOTHYROXINE. [Concomitant]
     Active Substance: LEVOTHYROXINE
     Indication: THYROID DISORDER
     Dosage: 100 UG, 1X/DAY
     Route: 048
  2. PREMPRO [Suspect]
     Active Substance: ESTROGENS, CONJUGATED\MEDROXYPROGESTERONE ACETATE
     Indication: HOT FLUSH
  3. SODIUM CHLORIDE. [Concomitant]
     Active Substance: SODIUM CHLORIDE
     Indication: BLOOD SODIUM ABNORMAL
     Dosage: 1 G, 1X/DAY
  4. VALSARTAN. [Concomitant]
     Active Substance: VALSARTAN
     Indication: CARDIAC DISORDER
     Dosage: 320 MG, 1X/DAY
     Route: 048
  5. CARVEDILOL. [Concomitant]
     Active Substance: CARVEDILOL
     Indication: CARDIAC DISORDER
     Dosage: 12.5 MG, 2X/DAY
     Route: 048
  6. PREMPRO [Suspect]
     Active Substance: ESTROGENS, CONJUGATED\MEDROXYPROGESTERONE ACETATE
     Indication: MENOPAUSE
     Dosage: 0.45MG/1.5MG TABLET ONCE A DAY
     Route: 048
  7. FLOVENT [Concomitant]
     Active Substance: FLUTICASONE PROPIONATE
     Indication: CHRONIC OBSTRUCTIVE PULMONARY DISEASE
     Dosage: 440 UG, 1X/DAY (220MCG TWO PUFFS ONCE A DAY)
  8. KLOR?CON [Concomitant]
     Active Substance: POTASSIUM CHLORIDE
     Indication: BLOOD POTASSIUM ABNORMAL
     Dosage: ^M10^ ONCE A DAY
     Route: 048
  9. VALSARTAN. [Concomitant]
     Active Substance: VALSARTAN
     Indication: HYPERTENSION

REACTIONS (3)
  - Thrombosis [Unknown]
  - Cardiac failure congestive [Unknown]
  - Off label use [Unknown]

NARRATIVE: CASE EVENT DATE: 2020
